FAERS Safety Report 7666362-7 (Version None)
Quarter: 2011Q3

REPORT INFORMATION
  Report Type: 
  Country: None (occurrence: None)
  Receive Date: 20110806
  Receipt Date: 20110317
  Transmission Date: 20111222
  Serious: No
  Sender: FDA-Public Use
  Company Number: US-ABBOTT-11P-163-0712661-00

PATIENT
  Sex: Female
  Weight: 56.75 kg

DRUGS (11)
  1. NIASPAN [Suspect]
     Dates: start: 20110205, end: 20110205
  2. CRESTOR [Concomitant]
     Indication: PRODUCT USED FOR UNKNOWN INDICATION
  3. ASCORBIC ACID [Concomitant]
     Indication: PRODUCT USED FOR UNKNOWN INDICATION
  4. NIASPAN [Suspect]
     Indication: BLOOD CHOLESTEROL INCREASED
     Dates: start: 20101214, end: 20110101
  5. NIASPAN [Suspect]
     Indication: BLOOD CHOLESTEROL INCREASED
     Dates: start: 20110205, end: 20110205
  6. ASPIRIN [Concomitant]
     Indication: PROPHYLAXIS
  7. ASPIRIN [Concomitant]
     Indication: FLUSHING
  8. NIASPAN [Suspect]
     Dates: start: 20110101, end: 20110204
  9. MULTI-VITAMIN [Concomitant]
     Indication: PRODUCT USED FOR UNKNOWN INDICATION
  10. GLUCOTROL [Concomitant]
     Indication: DIABETES MELLITUS
  11. CALCIUM ACETATE [Concomitant]
     Indication: PRODUCT USED FOR UNKNOWN INDICATION

REACTIONS (5)
  - PRURITUS [None]
  - PARAESTHESIA [None]
  - BLOOD GLUCOSE INCREASED [None]
  - RASH [None]
  - DIZZINESS [None]
